FAERS Safety Report 4457826-8 (Version None)
Quarter: 2004Q3

REPORT INFORMATION
  Report Type: 
  Country: None (occurrence: None)
  Receive Date: 20040920
  Receipt Date: 20040907
  Transmission Date: 20050211
  Serious: Yes (Disabling)
  Sender: FDA-Public Use
  Company Number: 2004UW04341

PATIENT
  Age: 44 Year
  Sex: Male
  Weight: 120.2032 kg

DRUGS (6)
  1. CRESTOR [Suspect]
     Indication: HYPERCHOLESTEROLAEMIA
     Dosage: 10 MG QD PO
     Route: 048
     Dates: start: 20040204, end: 20040307
  2. LORTAB [Concomitant]
  3. XANAX [Concomitant]
  4. DILANTIN [Concomitant]
  5. PROZAC [Concomitant]
  6. ASPIRIN [Concomitant]

REACTIONS (7)
  - DELUSIONAL PERCEPTION [None]
  - DYSKINESIA [None]
  - EYE HAEMORRHAGE [None]
  - FALL [None]
  - GAIT DISTURBANCE [None]
  - RHABDOMYOLYSIS [None]
  - TREMOR [None]
